FAERS Safety Report 16817331 (Version 1)
Quarter: 2019Q3

REPORT INFORMATION
  Report Type: Spontaneous
  Country: US (occurrence: US)
  Receive Date: 20190917
  Receipt Date: 20190917
  Transmission Date: 20191005
  Serious: No
  Sender: FDA-Public Use
  Company Number: US-PFIZER INC-2019396063

PATIENT
  Sex: Female

DRUGS (2)
  1. PRIMIDONE. [Suspect]
     Active Substance: PRIMIDONE
     Indication: TREMOR
     Dosage: UNK
  2. PROPANOLOL HCL [Suspect]
     Active Substance: PROPRANOLOL HYDROCHLORIDE
     Indication: TREMOR
     Dosage: UNK

REACTIONS (1)
  - Somnolence [Unknown]
